FAERS Safety Report 7998356-6 (Version None)
Quarter: 2011Q4

REPORT INFORMATION
  Report Type: 
  Country: None (occurrence: None)
  Receive Date: 20111221
  Receipt Date: 20110812
  Transmission Date: 20120403
  Serious: No
  Sender: FDA-Public Use
  Company Number: US-GLAXOSMITHKLINE-A0940911A

PATIENT
  Age: 54 Year
  Sex: Female

DRUGS (6)
  1. LOVAZA [Suspect]
     Indication: BLOOD TRIGLYCERIDES INCREASED
     Dosage: 1CAP PER DAY
     Route: 048
     Dates: start: 20101201, end: 20110601
  2. XANAX [Concomitant]
  3. BETA BLOCKER [Concomitant]
  4. WELLBUTRIN XL [Concomitant]
  5. NAPROSYN [Concomitant]
  6. MULTI-VITAMIN [Concomitant]

REACTIONS (2)
  - BLOOD IRON INCREASED [None]
  - FATIGUE [None]
